FAERS Safety Report 7157814-7 (Version None)
Quarter: 2010Q4

REPORT INFORMATION
  Report Type: 
  Country: None (occurrence: None)
  Receive Date: 20101214
  Receipt Date: 20101203
  Transmission Date: 20110411
  Serious: Yes (Hospitalization)
  Sender: FDA-Public Use
  Company Number: CA-JNJFOC-20101202212

PATIENT
  Sex: Female
  Weight: 86 kg

DRUGS (4)
  1. STELARA [Suspect]
     Indication: PUSTULAR PSORIASIS
     Route: 058
  2. STELARA [Suspect]
     Route: 058
  3. PLACEBO [Suspect]
     Indication: PUSTULAR PSORIASIS
     Route: 058
  4. PLACEBO [Suspect]
     Route: 058

REACTIONS (1)
  - CELLULITIS [None]
